FAERS Safety Report 18243004 (Version 2)
Quarter: 2020Q3

REPORT INFORMATION
  Report Type: Spontaneous
  Country: US (occurrence: US)
  Receive Date: 20200908
  Receipt Date: 20200924
  Transmission Date: 20201103
  Serious: No
  Sender: FDA-Public Use
  Company Number: US-PFIZER INC-2020336337

PATIENT
  Age: 83 Year
  Sex: Male

DRUGS (6)
  1. BRAFTOVI [Suspect]
     Active Substance: ENCORAFENIB
     Indication: BONE CANCER
  2. BRAFTOVI [Suspect]
     Active Substance: ENCORAFENIB
     Indication: MALIGNANT MELANOMA
  3. MEKTOVI [Suspect]
     Active Substance: BINIMETINIB
     Indication: PROSTATE CANCER METASTATIC
     Dosage: 45 MG
  4. MEKTOVI [Suspect]
     Active Substance: BINIMETINIB
     Indication: BONE CANCER
  5. MEKTOVI [Suspect]
     Active Substance: BINIMETINIB
     Indication: MALIGNANT MELANOMA
  6. BRAFTOVI [Suspect]
     Active Substance: ENCORAFENIB
     Indication: PROSTATE CANCER METASTATIC
     Dosage: 450 MG

REACTIONS (2)
  - Product use in unapproved indication [Unknown]
  - Off label use [Unknown]
